FAERS Safety Report 8399946-1 (Version None)
Quarter: 2012Q2

REPORT INFORMATION
  Report Type: 
  Country: None (occurrence: None)
  Receive Date: 20120531
  Receipt Date: 20120522
  Transmission Date: 20120825
  Serious: Yes (Hospitalization)
  Sender: FDA-Public Use
  Company Number: FR-UCBSA-058010

PATIENT
  Age: 71 Year
  Sex: Male
  Weight: 72 kg

DRUGS (7)
  1. VANCOMYCIN HCL [Suspect]
     Indication: ENDOCARDITIS
     Route: 042
     Dates: start: 20120215, end: 20120308
  2. AMOXICILLIN [Concomitant]
     Dates: end: 20120401
  3. AMOXICILLIN [Concomitant]
     Route: 048
     Dates: start: 20120401
  4. KEPPRA [Suspect]
     Route: 048
     Dates: start: 20120301, end: 20120416
  5. GENTAMICIN [Concomitant]
     Indication: INFECTION
     Dates: start: 20120215
  6. RIFAMPICIN [Concomitant]
     Indication: INFECTION
     Dates: start: 20120221
  7. AMOXICILLIN [Concomitant]
     Route: 042
     Dates: start: 20120401

REACTIONS (4)
  - ANAEMIA [None]
  - LINEAR IGA DISEASE [None]
  - DRUG RASH WITH EOSINOPHILIA AND SYSTEMIC SYMPTOMS [None]
  - AUTOIMMUNE THROMBOCYTOPENIA [None]
